FAERS Safety Report 9468450 (Version 1)
Quarter: 2013Q3

REPORT INFORMATION
  Report Type: Spontaneous
  Country: GB (occurrence: GB)
  Receive Date: 20130821
  Receipt Date: 20130821
  Transmission Date: 20140515
  Serious: Yes (Other)
  Sender: FDA-Public Use
  Company Number: GB-TEVA-425788ISR

PATIENT
  Age: 64 Year
  Sex: Male
  Weight: 70 kg

DRUGS (3)
  1. TRIMETHOPRIM [Suspect]
     Indication: PROSTATITIS ESCHERICHIA COLI
     Dosage: 400 MILLIGRAM DAILY;
     Route: 048
     Dates: start: 20130212, end: 20130320
  2. THYROXINE [Concomitant]
  3. PROCHLORPERAZINE [Concomitant]
     Indication: NAUSEA
     Dosage: FOR NAUSEA FROM TRIMETHOPRIM.
     Route: 002

REACTIONS (2)
  - Tremor [Not Recovered/Not Resolved]
  - Myoclonus [Recovered/Resolved]
